FAERS Safety Report 13991118 (Version 13)
Quarter: 2022Q3

REPORT INFORMATION
  Report Type: Spontaneous
  Country: GB (occurrence: GB)
  Receive Date: 20170920
  Receipt Date: 20220825
  Transmission Date: 20221027
  Serious: Yes (Death, Other)
  Sender: FDA-Public Use
  Company Number: GB-ACTAVIS-042724

PATIENT
  Age: 44 Year
  Sex: Female

DRUGS (10)
  1. PREGABALIN [Suspect]
     Active Substance: PREGABALIN
     Indication: Product used for unknown indication
     Dosage: 3 DF,TOTAL
     Route: 065
     Dates: start: 20161015, end: 20161015
  2. PREGABALIN [Suspect]
     Active Substance: PREGABALIN
     Indication: Product used for unknown indication
     Dosage: UNK
     Route: 065
  3. ZOPICLONE [Suspect]
     Active Substance: ZOPICLONE
     Indication: Sleep disorder
     Dosage: 14 DF, QOW
     Route: 048
  4. MORPHINE [Suspect]
     Active Substance: MORPHINE
     Indication: Product used for unknown indication
     Dosage: UNK, TOTAL
     Route: 065
     Dates: start: 20161014, end: 20161014
  5. COCODAMOL [Suspect]
     Active Substance: ACETAMINOPHEN\CODEINE PHOSPHATE
     Indication: Pain
     Dosage: 28 TABLETS IN ONE DAY (THE MAXIMUM RECOMMENDED DAILY DOSE IS EIGHT TABLETS)
     Route: 065
  6. COCODAMOL [Suspect]
     Active Substance: ACETAMINOPHEN\CODEINE PHOSPHATE
     Indication: Analgesic therapy
     Dosage: 28 DF, QD
     Route: 048
  7. ACETAMINOPHEN [Suspect]
     Active Substance: ACETAMINOPHEN
     Indication: Product used for unknown indication
     Dosage: UNK
     Route: 065
  8. ACETAMINOPHEN [Suspect]
     Active Substance: ACETAMINOPHEN
     Indication: Pain
     Dosage: UNK UNK, QD,
     Route: 048
     Dates: start: 20161014, end: 20161014
  9. ACETAMINOPHEN [Suspect]
     Active Substance: ACETAMINOPHEN
     Dosage: 28 DF,QD
     Route: 048
  10. MORPHINE SULFATE [Suspect]
     Active Substance: MORPHINE SULFATE
     Indication: Product used for unknown indication
     Dosage: UNK
     Route: 065

REACTIONS (25)
  - Accidental overdose [Fatal]
  - Drug abuse [Fatal]
  - Vision blurred [Fatal]
  - Dysarthria [Fatal]
  - Eye pain [Fatal]
  - Gait disturbance [Fatal]
  - Prescription drug used without a prescription [Fatal]
  - Toxicity to various agents [Fatal]
  - Intentional product misuse [Fatal]
  - Drug diversion [Fatal]
  - Dysarthria [Fatal]
  - Pneumonia [Fatal]
  - Drug diversion [Fatal]
  - Vision blurred [Fatal]
  - Pneumonia [Fatal]
  - Intentional product misuse [Fatal]
  - Toxicity to various agents [Fatal]
  - Accidental overdose [Fatal]
  - Drug abuse [Fatal]
  - Gait disturbance [Fatal]
  - Eye pain [Fatal]
  - Toxicity to various agents [Fatal]
  - Prescription drug used without a prescription [Fatal]
  - Accidental overdose [Fatal]
  - Dysarthria [Fatal]

NARRATIVE: CASE EVENT DATE: 20161001
